FAERS Safety Report 5828268-5 (Version None)
Quarter: 2008Q3

REPORT INFORMATION
  Report Type: 
  Country: None (occurrence: None)
  Receive Date: 20080731
  Receipt Date: 20080725
  Transmission Date: 20090109
  Serious: Yes (Other)
  Sender: FDA-Public Use
  Company Number: US-ASTRAZENECA-2008UW14594

PATIENT
  Age: 59 Year
  Sex: Female
  Weight: 133.8 kg

DRUGS (7)
  1. METOPROLOL SUCCINATE [Suspect]
     Indication: HYPERTENSION
     Route: 048
  2. ARICEPT [Concomitant]
  3. METFORMIN HCL [Concomitant]
  4. NORVASC [Concomitant]
  5. ZOLOFT [Concomitant]
  6. ACTOS [Concomitant]
  7. LIPITOR [Concomitant]

REACTIONS (2)
  - DIZZINESS [None]
  - DYSPNOEA [None]
